FAERS Safety Report 23830865 (Version 1)
Quarter: 2024Q2

REPORT INFORMATION
  Report Type: Spontaneous
  Country: JP (occurrence: JP)
  Receive Date: 20240508
  Receipt Date: 20240508
  Transmission Date: 20240715
  Serious: Yes (Other)
  Sender: FDA-Public Use
  Company Number: JP-BAYER-2024A067816

PATIENT
  Age: 43 Year
  Sex: Male

DRUGS (2)
  1. IOPROMIDE [Suspect]
     Active Substance: IOPROMIDE
     Indication: Intra-cerebral aneurysm operation
     Dates: start: 20240501, end: 20240502
  2. IOPROMIDE [Suspect]
     Active Substance: IOPROMIDE
     Indication: Basilar artery aneurysm

REACTIONS (1)
  - Contrast encephalopathy [Recovering/Resolving]

NARRATIVE: CASE EVENT DATE: 20240501
